FAERS Safety Report 9456333 (Version 1)
Quarter: 2013Q3

REPORT INFORMATION
  Report Type: Spontaneous
  Country: US (occurrence: US)
  Receive Date: 20130813
  Receipt Date: 20130813
  Transmission Date: 20140515
  Serious: No
  Sender: FDA-Public Use
  Company Number: US-PFIZER INC-2013230962

PATIENT
  Age: 62 Year
  Sex: Female

DRUGS (1)
  1. BOSULIF [Suspect]
     Indication: LEUKAEMIA
     Dosage: 300 MG (3 TABLETS OF 100MG), 1X/DAY
     Route: 048
     Dates: start: 201308

REACTIONS (2)
  - Nausea [Recovered/Resolved]
  - Fatigue [Recovered/Resolved]
